FAERS Safety Report 8577290-7 (Version None)
Quarter: 2012Q3

REPORT INFORMATION
  Report Type: 
  Country: None (occurrence: None)
  Receive Date: 20120807
  Receipt Date: 20120607
  Transmission Date: 20120928
  Serious: No
  Sender: FDA-Public Use
  Company Number: US-COVIDIEN/TYCO HEALTHCARE/MALLINCKRODT-T201202530

PATIENT

DRUGS (2)
  1. HUMIRA [Concomitant]
     Dosage: 40 MG Q 7 DAYS
  2. PENNSAID [Suspect]
     Dosage: 40 DROPS THREE TIMES DAILY
     Route: 061
     Dates: start: 20120330, end: 20120501

REACTIONS (7)
  - TENDERNESS [None]
  - MUSCULOSKELETAL STIFFNESS [None]
  - DYSPHAGIA [None]
  - MUSCLE TIGHTNESS [None]
  - NECK PAIN [None]
  - URTICARIA [None]
  - PAIN [None]
